FAERS Safety Report 20603783 (Version 1)
Quarter: 2022Q1

REPORT INFORMATION
  Report Type: Spontaneous
  Country: CA (occurrence: CA)
  Receive Date: 20220316
  Receipt Date: 20220316
  Transmission Date: 20220424
  Serious: Yes (Life-Threatening, Hospitalization)
  Sender: FDA-Public Use
  Company Number: CA-JNJFOC-20220325673

PATIENT
  Age: 66 Year
  Sex: Male

DRUGS (11)
  1. TOPAMAX [Suspect]
     Active Substance: TOPIRAMATE
     Indication: Migraine prophylaxis
     Route: 048
  2. TOPAMAX [Suspect]
     Active Substance: TOPIRAMATE
     Route: 048
  3. TOPAMAX [Suspect]
     Active Substance: TOPIRAMATE
     Route: 048
  4. ATORVASTATIN [Concomitant]
     Active Substance: ATORVASTATIN
     Route: 065
  5. CELECOXIB [Concomitant]
     Active Substance: CELECOXIB
  6. DULOXETINE HYDROCHLORIDE [Concomitant]
     Active Substance: DULOXETINE HYDROCHLORIDE
     Route: 048
  7. ELETRIPTAN [Concomitant]
     Active Substance: ELETRIPTAN
  8. ESOMEPRAZOLE [Concomitant]
     Active Substance: ESOMEPRAZOLE
  9. LORAZEPAM [Concomitant]
     Active Substance: LORAZEPAM
  10. SILDENAFIL [Concomitant]
     Active Substance: SILDENAFIL
  11. ZOPICLONE [Concomitant]
     Active Substance: ZOPICLONE

REACTIONS (5)
  - Suicide attempt [Unknown]
  - Suicidal ideation [Unknown]
  - Hallucination, auditory [Unknown]
  - Abnormal behaviour [Unknown]
  - Euphoric mood [Unknown]
